FAERS Safety Report 8739053 (Version 3)
Quarter: 2013Q1

REPORT INFORMATION
  Report Type: Spontaneous
  Country: US (occurrence: US)
  Receive Date: 20120823
  Receipt Date: 20130121
  Transmission Date: 20140127
  Serious: Yes (Death, Hospitalization)
  Sender: FDA-Public Use
  Company Number: US-INCYTE CORPORATION-2012IN001566

PATIENT
  Age: 91 Year
  Sex: Male

DRUGS (12)
  1. JAKAFI [Suspect]
     Indication: MYELOFIBROSIS
     Dosage: 10 MG, SUNDAY, TUESDAY, THURSDAY AND SATURDAY
     Route: 048
     Dates: start: 20120329, end: 201206
  2. JAKAFI [Suspect]
     Dosage: 20 MG, MONDAY, WEDNESDAY, FRIDAY AFTER DIALYSIS
     Route: 048
     Dates: start: 201206, end: 201206
  3. JAKAFI [Suspect]
     Dosage: 10 MG, BID
     Route: 048
     Dates: start: 201206, end: 20130107
  4. LIPITOR [Concomitant]
     Dosage: 10 MG, QD
  5. CALCIUM WITH VITAMIN D [Concomitant]
     Dosage: UNK, BID
  6. AVODART [Concomitant]
     Dosage: 0.5 MG, QD
  7. PANTOPRAZOLE [Concomitant]
     Dosage: 40 MG, QD
  8. RENAGEL [Concomitant]
     Dosage: 400 MG, QD
  9. NEPHROVITE [Concomitant]
     Dosage: UNK, QD
  10. CARVEDILOL [Concomitant]
     Dosage: 3.125 MG, BID
  11. HYDROXYUREA [Concomitant]
     Dosage: 500 MG, BID
  12. ANDROGENS [Concomitant]

REACTIONS (4)
  - Death [Fatal]
  - Cardiac failure [Unknown]
  - Renal failure [Unknown]
  - Anaemia [Unknown]
